FAERS Safety Report 20157363 (Version 3)
Quarter: 2025Q1

REPORT INFORMATION
  Report Type: Spontaneous
  Country: US (occurrence: US)
  Receive Date: 20211207
  Receipt Date: 20250131
  Transmission Date: 20250409
  Serious: No
  Sender: BRISTOL-MYERS SQUIBB COMPANY
  Company Number: US-BRISTOL-MYERS SQUIBB COMPANY-BMS-2021-132312

PATIENT
  Age: 74 Year
  Sex: Female

DRUGS (1)
  1. ABATACEPT [Suspect]
     Active Substance: ABATACEPT
     Indication: Rheumatoid arthritis
     Dosage: BATCH NUMBER: BCUG07A, EXPIRATION DATE: 30-JUN-2023
     Route: 058
     Dates: start: 20161130

REACTIONS (3)
  - Joint swelling [Unknown]
  - Arthralgia [Unknown]
  - Inflammation [Unknown]

NARRATIVE: CASE EVENT DATE: 20211101
